FAERS Safety Report 4784636-4 (Version None)
Quarter: 2005Q3

REPORT INFORMATION
  Report Type: 
  Country: None (occurrence: None)
  Receive Date: 20050930
  Receipt Date: 20050919
  Transmission Date: 20060218
  Serious: Yes (Hospitalization, Disabling)
  Sender: FDA-Public Use
  Company Number: US-MERCK-0509USA02600

PATIENT
  Age: 54 Year
  Sex: Male
  Weight: 80 kg

DRUGS (9)
  1. VIOXX [Suspect]
     Indication: HERPES ZOSTER
     Route: 048
     Dates: start: 20030201, end: 20040801
  2. VIOXX [Suspect]
     Route: 048
     Dates: start: 20030201, end: 20040801
  3. VIOXX [Suspect]
     Indication: ARTHRALGIA
     Route: 048
     Dates: start: 20030201, end: 20040801
  4. VIOXX [Suspect]
     Route: 048
     Dates: start: 20030201, end: 20040801
  5. ALEVE [Concomitant]
     Route: 065
  6. PREDNISONE [Concomitant]
     Route: 065
  7. LORCET-HD [Concomitant]
     Route: 065
  8. ADVAIR DISKUS 100/50 [Concomitant]
     Route: 065
  9. PROTONIX [Concomitant]
     Route: 065

REACTIONS (10)
  - ACUTE MYOCARDIAL INFARCTION [None]
  - ARTHRITIS [None]
  - CORONARY ARTERY DISEASE [None]
  - GASTROOESOPHAGEAL REFLUX DISEASE [None]
  - HEPATITIS C [None]
  - HYPERCHOLESTEROLAEMIA [None]
  - HYPERTENSION [None]
  - MYALGIA [None]
  - OSTEOARTHRITIS [None]
  - RHEUMATOID ARTHRITIS [None]
